FAERS Safety Report 5468769-5 (Version None)
Quarter: 2007Q3

REPORT INFORMATION
  Report Type: 
  Country: None (occurrence: None)
  Receive Date: 20070926
  Receipt Date: 20070916
  Transmission Date: 20080115
  Serious: Yes (Other)
  Sender: FDA-Public Use
  Company Number: IL-PFIZER INC-2007067360

PATIENT
  Age: 61 Year
  Sex: Male

DRUGS (5)
  1. ALDACTONE [Suspect]
     Route: 048
  2. INSPRA [Suspect]
  3. ACE INHIBITOR NOS [Concomitant]
  4. BETA BLOCKING AGENTS [Concomitant]
  5. DIURETICS [Concomitant]

REACTIONS (1)
  - SKIN LESION [None]
